FAERS Safety Report 6672837-X (Version None)
Quarter: 2010Q2

REPORT INFORMATION
  Report Type: 
  Country: None (occurrence: None)
  Receive Date: 20100408
  Receipt Date: 20100326
  Transmission Date: 20101027
  Serious: Yes (Hospitalization)
  Sender: FDA-Public Use
  Company Number: PHHY2010JP03690

PATIENT
  Sex: Male
  Weight: 63 kg

DRUGS (4)
  1. ZOMETA [Suspect]
     Indication: METASTASES TO BONE
     Dosage: UNK
     Route: 042
     Dates: start: 20100115
  2. DOCETAXEL [Suspect]
     Indication: PROSTATE CANCER
     Dosage: 120MG
     Dates: start: 20100114
  3. TAXOL [Concomitant]
     Route: 042
  4. KYTRIL [Concomitant]
     Indication: PROSTATE CANCER
     Dosage: 3MG
     Dates: start: 20100114

REACTIONS (4)
  - C-REACTIVE PROTEIN INCREASED [None]
  - DRUG ERUPTION [None]
  - PYREXIA [None]
  - WHITE BLOOD CELL COUNT DECREASED [None]
